FAERS Safety Report 15413173 (Version 6)
Quarter: 2019Q1

REPORT INFORMATION
  Report Type: Report from Study
  Country: CA (occurrence: CA)
  Receive Date: 20180921
  Receipt Date: 20190221
  Transmission Date: 20190417
  Serious: Yes (Hospitalization)
  Sender: FDA-Public Use
  Company Number: CA-ROCHE-2185281

PATIENT
  Age: 41 Year
  Sex: Female
  Weight: 54.5 kg

DRUGS (13)
  1. TYLENOL [Concomitant]
     Active Substance: ACETAMINOPHEN
     Indication: HEADACHE
     Route: 065
     Dates: start: 2000
  2. BENADRYL [Concomitant]
     Active Substance: DIPHENHYDRAMINE HYDROCHLORIDE
     Indication: THROAT IRRITATION
     Route: 065
     Dates: start: 20130710, end: 20130710
  3. OCRELIZUMAB. [Suspect]
     Active Substance: OCRELIZUMAB
     Indication: PRIMARY PROGRESSIVE MULTIPLE SCLEROSIS
     Dosage: TWO INTRAVENOUS (IV) INFUSIONS OF OCRELIZUMAB SEPARATED BY 14 DAYS IN EACH TREATMENT CYCLE OF 24 WEE
     Route: 042
     Dates: start: 20120731, end: 20160406
  4. METHYLPREDNISOLONE. [Concomitant]
     Active Substance: METHYLPREDNISOLONE
     Dosage: SUBSEQUENT DOSE RECEIVED ON:14/AUG/2012, 15/JAN/2013, 29/JAN/2013, 10/JUL/2013, 30/JUL/2013, 18/DEC/
     Route: 065
     Dates: start: 20120731
  5. TYLENOL [Concomitant]
     Active Substance: ACETAMINOPHEN
     Indication: PAIN
     Dosage: SUBSEQUENT DOSE RECEIVED ON:14/AUG/2012 (1000 MG), 15/JAN/2013 (1000 MG), 29/JAN/2013 (1000 MG), 10/
     Route: 065
     Dates: start: 20120731
  6. TYLENOL [Concomitant]
     Active Substance: ACETAMINOPHEN
     Route: 065
     Dates: start: 20120802, end: 20120805
  7. VESICARE [Concomitant]
     Active Substance: SOLIFENACIN SUCCINATE
     Indication: MICTURITION URGENCY
     Route: 065
     Dates: start: 20170321, end: 201805
  8. OCRELIZUMAB. [Suspect]
     Active Substance: OCRELIZUMAB
     Indication: PRIMARY PROGRESSIVE MULTIPLE SCLEROSIS
     Dosage: TWO IV INFUSIONS OF OCRELIZUMAB 300 MG SEPARATED BY 14 DAYS FOR CYCLE 1 AND SINGLE IV INFUSION OF OC
     Route: 042
     Dates: start: 20160407
  9. BENADRYL [Concomitant]
     Active Substance: DIPHENHYDRAMINE HYDROCHLORIDE
     Indication: EAR PRURITUS
     Dosage: SUBSEQUENT DOSE RECEIVED ON:14/AUG/2012, 15/JAN/2013, 29/JAN/2013, 10/JUL/2013, 30/JUL/2013, 18/DEC/
     Route: 065
     Dates: start: 20120731
  10. BACLOFEN. [Concomitant]
     Active Substance: BACLOFEN
     Route: 065
     Dates: start: 201808, end: 201809
  11. VESICARE [Concomitant]
     Active Substance: SOLIFENACIN SUCCINATE
     Route: 065
     Dates: start: 201805
  12. MOMETASONE [Concomitant]
     Active Substance: MOMETASONE
     Indication: SINUSITIS
     Route: 045
     Dates: start: 20180909, end: 20180911
  13. BACLOFEN. [Concomitant]
     Active Substance: BACLOFEN
     Indication: MUSCLE SPASTICITY
     Route: 065
     Dates: start: 20170613, end: 201809

REACTIONS (2)
  - Neutropenia [Recovered/Resolved]
  - Pneumonia [Recovered/Resolved]

NARRATIVE: CASE EVENT DATE: 20180906
